FAERS Safety Report 14505722 (Version 1)
Quarter: 2018Q1

REPORT INFORMATION
  Report Type: Spontaneous
  Country: GB (occurrence: GB)
  Receive Date: 20180207
  Receipt Date: 20180207
  Transmission Date: 20180509
  Serious: No
  Sender: FDA-Public Use
  Company Number: None

PATIENT
  Age: 45 Year
  Sex: Female
  Weight: 65 kg

DRUGS (3)
  1. AMITRIPTYLINE [Concomitant]
     Active Substance: AMITRIPTYLINE
  2. OLAY REGENERIST CC COMPLEXION CORRECTOR SPF15 (OCTOCRYLENE\TITANIUM DIOXIDE) [Suspect]
     Active Substance: OCTOCRYLENE\TITANIUM DIOXIDE
  3. PARACETAMOL [Concomitant]
     Active Substance: ACETAMINOPHEN

REACTIONS (10)
  - Application site burn [None]
  - Application site warmth [None]
  - Dry eye [None]
  - Paraesthesia [None]
  - Application site pain [None]
  - Hypersensitivity [None]
  - Sleep disorder [None]
  - Chemical burn [None]
  - Swelling face [None]
  - Erythema [None]

NARRATIVE: CASE EVENT DATE: 20180205
